FAERS Safety Report 16497636 (Version 1)
Quarter: 2019Q2

REPORT INFORMATION
  Report Type: Spontaneous
  Country: PT (occurrence: PT)
  Receive Date: 20190628
  Receipt Date: 20190628
  Transmission Date: 20190711
  Serious: Yes (Life-Threatening, Hospitalization)
  Sender: FDA-Public Use
  Company Number: PT-ABBVIE-19K-130-2836911-00

PATIENT
  Age: 60 Year
  Sex: Male

DRUGS (2)
  1. HUMIRA [Suspect]
     Active Substance: ADALIMUMAB
     Indication: CROHN^S DISEASE
     Route: 058
     Dates: start: 20140414, end: 20190216
  2. MESALAZINE [Concomitant]
     Active Substance: MESALAMINE
     Indication: PRODUCT USED FOR UNKNOWN INDICATION
     Route: 048
     Dates: start: 20130102

REACTIONS (3)
  - Respiratory failure [Recovered/Resolved with Sequelae]
  - Cardiac failure acute [Recovered/Resolved with Sequelae]
  - Pneumonia viral [Recovered/Resolved with Sequelae]

NARRATIVE: CASE EVENT DATE: 20190216
